FAERS Safety Report 15307490 (Version 1)
Quarter: 2018Q3

REPORT INFORMATION
  Report Type: Spontaneous
  Country: US (occurrence: US)
  Receive Date: 20180822
  Receipt Date: 20180822
  Transmission Date: 20181010
  Serious: Yes (Other)
  Sender: FDA-Public Use
  Company Number: US-JNJFOC-20180821264

PATIENT
  Age: 16 Year
  Sex: Male
  Weight: 53.52 kg

DRUGS (4)
  1. OMEPRAZOLE. [Concomitant]
     Active Substance: OMEPRAZOLE
     Indication: GASTROOESOPHAGEAL REFLUX DISEASE
     Route: 065
  2. BENADRYL [Concomitant]
     Active Substance: DIPHENHYDRAMINE HYDROCHLORIDE
     Indication: PREMEDICATION
     Route: 048
     Dates: start: 20170110
  3. REMICADE [Suspect]
     Active Substance: INFLIXIMAB
     Indication: COLITIS ULCERATIVE
     Route: 042
     Dates: start: 20170110
  4. IRON [Concomitant]
     Active Substance: IRON
     Indication: BLOOD COUNT ABNORMAL
     Route: 065

REACTIONS (3)
  - Incorrect drug administration rate [Unknown]
  - Infusion related reaction [Unknown]
  - Haematochezia [Unknown]

NARRATIVE: CASE EVENT DATE: 20170110
